FAERS Safety Report 6324394-5 (Version None)
Quarter: 2009Q3

REPORT INFORMATION
  Report Type: 
  Country: None (occurrence: None)
  Receive Date: 20090824
  Receipt Date: 20090514
  Transmission Date: 20100115
  Serious: No
  Sender: FDA-Public Use
  Company Number: US-ABBOTT-09P-163-0573632-00

PATIENT
  Sex: Male
  Weight: 84.898 kg

DRUGS (8)
  1. NIASPAN [Suspect]
     Indication: LIPOPROTEIN (A)
     Route: 048
     Dates: start: 20090507
  2. ASPIRIN [Concomitant]
     Indication: CARDIOVASCULAR EVENT PROPHYLAXIS
     Route: 048
  3. CRESTOR [Concomitant]
     Indication: BLOOD CHOLESTEROL INCREASED
     Route: 048
  4. ZETIA [Concomitant]
     Indication: BLOOD CHOLESTEROL INCREASED
     Route: 048
  5. CARDURA [Concomitant]
     Indication: HYPERTENSION
     Route: 048
  6. LOVAZA [Concomitant]
     Indication: BLOOD CHOLESTEROL INCREASED
     Route: 048
  7. VITAMIN 100 [Concomitant]
     Indication: MEDICAL DIET
     Route: 048
  8. ATIVAN [Concomitant]
     Indication: INSOMNIA
     Route: 048

REACTIONS (1)
  - HAEMATOCHEZIA [None]
